FAERS Safety Report 17585097 (Version 1)
Quarter: 2020Q1

REPORT INFORMATION
  Report Type: Report from Study
  Country: IT (occurrence: IT)
  Receive Date: 20200326
  Receipt Date: 20200326
  Transmission Date: 20200409
  Serious: Yes (Hospitalization)
  Sender: FDA-Public Use
  Company Number: IT-PFIZER INC-2020126865

PATIENT
  Age: 67 Year
  Sex: Male

DRUGS (2)
  1. XANAX [Suspect]
     Active Substance: ALPRAZOLAM
     Dosage: 20 DF, UNK
     Route: 048
     Dates: start: 20200217, end: 20200217
  2. PAROXETINE. [Suspect]
     Active Substance: PAROXETINE
     Dosage: 20 DF, UNK
     Route: 048
     Dates: start: 20200217, end: 20200217

REACTIONS (2)
  - Sopor [Recovering/Resolving]
  - Drug abuse [Recovering/Resolving]

NARRATIVE: CASE EVENT DATE: 20200217
